FAERS Safety Report 4391091-5 (Version None)
Quarter: 2004Q3

REPORT INFORMATION
  Report Type: 
  Country: None (occurrence: None)
  Receive Date: 20040702
  Receipt Date: 20040702
  Transmission Date: 20050211
  Serious: No
  Sender: FDA-Public Use
  Company Number: None

PATIENT
  Sex: Male

DRUGS (1)
  1. FENTANYL [Suspect]
     Dosage: 125 MCG

REACTIONS (2)
  - COMA [None]
  - OXYGEN SATURATION DECREASED [None]
